FAERS Safety Report 5808713-1 (Version None)
Quarter: 2008Q3

REPORT INFORMATION
  Report Type: 
  Country: None (occurrence: None)
  Receive Date: 20080714
  Receipt Date: 20080709
  Transmission Date: 20090109
  Serious: Yes (Other)
  Sender: FDA-Public Use
  Company Number: US-TEVA-174121USA

PATIENT
  Sex: Female

DRUGS (5)
  1. PROPOXYPHENE NAPSYLATE AND ACETAMINOPHEN [Suspect]
     Indication: PROCEDURAL PAIN
     Route: 048
     Dates: start: 20080627, end: 20080630
  2. DROSPIRENONE W/ETHINYLESTRADIOL [Concomitant]
  3. MONTELUKAST SODIUM [Concomitant]
  4. MOMETASONE FUROATE [Concomitant]
  5. ALBUTEROL [Concomitant]

REACTIONS (9)
  - ANXIETY [None]
  - CHILLS [None]
  - DEPRESSION [None]
  - HOMICIDAL IDEATION [None]
  - MOOD SWINGS [None]
  - NIGHTMARE [None]
  - SUICIDAL IDEATION [None]
  - TREMOR [None]
  - URINARY RETENTION [None]
